FAERS Safety Report 4458618-6 (Version None)
Quarter: 2004Q3

REPORT INFORMATION
  Report Type: 
  Country: None (occurrence: None)
  Receive Date: 20040917
  Receipt Date: 20030825
  Transmission Date: 20050211
  Serious: Yes (Hospitalization)
  Sender: FDA-Public Use
  Company Number: US-JNJFOC-20030706483

PATIENT
  Age: 41 Year
  Sex: Male
  Weight: 122.4712 kg

DRUGS (3)
  1. TOPAMAX [Suspect]
     Indication: WEIGHT DECREASED
     Dosage: 25-50 MG/DAY
     Dates: start: 20030715, end: 20030723
  2. LOTRIL ( ) LOTREL [Concomitant]
  3. WELBUTRIN ( ) BUPROPION HYDROCHLORIDE [Concomitant]

REACTIONS (1)
  - ANGLE CLOSURE GLAUCOMA [None]
